FAERS Safety Report 6339404-9 (Version None)
Quarter: 2009Q3

REPORT INFORMATION
  Report Type: 
  Country: None (occurrence: None)
  Receive Date: 20090903
  Receipt Date: 20090831
  Transmission Date: 20100115
  Serious: Yes (Hospitalization)
  Sender: FDA-Public Use
  Company Number: US-JNJFOC-20090900438

PATIENT
  Sex: Male
  Weight: 66.68 kg

DRUGS (3)
  1. FENTANYL TRANSDERMAL SYSTEM [Suspect]
     Indication: RADICULAR PAIN
     Route: 062
  2. PERCOCET [Concomitant]
     Indication: BREAKTHROUGH PAIN
     Route: 048
  3. AMBIEN [Concomitant]
     Indication: SLEEP DISORDER
     Route: 048

REACTIONS (4)
  - DRUG INEFFECTIVE [None]
  - INTERVERTEBRAL DISC DISORDER [None]
  - NECK PAIN [None]
  - WRONG TECHNIQUE IN DRUG USAGE PROCESS [None]
